FAERS Safety Report 25873129 (Version 2)
Quarter: 2025Q4

REPORT INFORMATION
  Report Type: Spontaneous
  Country: JP (occurrence: JP)
  Receive Date: 20251002
  Receipt Date: 20251009
  Transmission Date: 20260118
  Serious: Yes (Hospitalization, Other)
  Sender: PFIZER
  Company Number: JP-PFIZER INC-PV202500095277

PATIENT
  Age: 8 Decade
  Sex: Male
  Weight: 72 kg

DRUGS (15)
  1. ELREXFIO [Suspect]
     Active Substance: ELRANATAMAB-BCMM
     Indication: Plasma cell myeloma refractory
     Dosage: 12 MG
     Route: 058
     Dates: start: 20250729
  2. ELREXFIO [Suspect]
     Active Substance: ELRANATAMAB-BCMM
     Dosage: 12 MG
     Route: 058
     Dates: start: 20250821
  3. ELREXFIO [Suspect]
     Active Substance: ELRANATAMAB-BCMM
     Dosage: 32 MG
     Route: 058
     Dates: start: 20250825
  4. ELREXFIO [Suspect]
     Active Substance: ELRANATAMAB-BCMM
     Dosage: 76 MG (FIRST)
  5. ELREXFIO [Suspect]
     Active Substance: ELRANATAMAB-BCMM
     Dosage: 76 MG (SECOND)
  6. ELREXFIO [Suspect]
     Active Substance: ELRANATAMAB-BCMM
     Dosage: 76 MG (THIRD)
  7. FEBUXOSTAT DSEP [Concomitant]
     Indication: Hyperuricaemia
     Dosage: 2 DF, ONCE DAILY AFTER BREAKFAST
  8. NEXIUM [Concomitant]
     Active Substance: ESOMEPRAZOLE MAGNESIUM
     Indication: Prophylaxis against gastrointestinal ulcer
     Dosage: 1 DF, ONCE DAILY AFTER LUNCH
  9. CALCIUM CARBONATE\CHOLECALCIFEROL\MAGNESIUM CARBONATE [Concomitant]
     Active Substance: CALCIUM CARBONATE\CHOLECALCIFEROL\MAGNESIUM CARBONATE
     Indication: Hypocalcaemia
     Dosage: 2 DF, ONCE DAILY AFTER BREAKFAST
  10. SULFAMETHOXAZOLE\TRIMETHOPRIM [Concomitant]
     Active Substance: SULFAMETHOXAZOLE\TRIMETHOPRIM
     Indication: Infection prophylaxis
     Dosage: 1 DF, THREE TIMES A WEEK, MONDAY, WEDNESDAY, FRIDAY
     Route: 048
  11. ZOVIRAX [Concomitant]
     Active Substance: ACYCLOVIR
     Indication: Infection prophylaxis
     Dosage: 1 DF, DAILY AFTER BREAKFAST
  12. SENNOSIDE SAWAI [Concomitant]
     Indication: Constipation
     Dosage: 2 DF, SINGLE, BEFORE BEDTIME
  13. CALONAL [Concomitant]
     Active Substance: ACETAMINOPHEN
     Indication: Premedication
     Dosage: 500 MG
  14. DECADRON [Concomitant]
     Active Substance: DEXAMETHASONE
     Indication: Premedication
     Dosage: 20 MG
  15. FEXOFENADINE [Concomitant]
     Active Substance: FEXOFENADINE HYDROCHLORIDE
     Indication: Premedication
     Dosage: 60 MG

REACTIONS (5)
  - Cytokine release syndrome [Recovered/Resolved]
  - Plasma cell myeloma refractory [Unknown]
  - Malignant neoplasm progression [Unknown]
  - Full blood count decreased [Not Recovered/Not Resolved]
  - Faeces discoloured [Recovered/Resolved]

NARRATIVE: CASE EVENT DATE: 20250101
